FAERS Safety Report 13064536 (Version 1)
Quarter: 2016Q4

REPORT INFORMATION
  Report Type: Spontaneous
  Country: EG (occurrence: EG)
  Receive Date: 20161227
  Receipt Date: 20161227
  Transmission Date: 20170207
  Serious: Yes (Other)
  Sender: FDA-Public Use
  Company Number: EG-NAPPMUNDI-DEU-2016-0018501

PATIENT
  Age: 32 Year
  Sex: Male

DRUGS (2)
  1. MORPHINE SULFATE. [Suspect]
     Active Substance: MORPHINE SULFATE
     Indication: SPINAL ANAESTHESIA
     Dosage: 0.2 MG, SINGLE
     Route: 037
  2. BUPIVACAINE. [Suspect]
     Active Substance: BUPIVACAINE
     Indication: SPINAL ANAESTHESIA
     Dosage: 15 MG, SINGLE
     Route: 037

REACTIONS (7)
  - Urinary retention [Recovered/Resolved]
  - Hypothermia [Unknown]
  - Heart rate normal [Unknown]
  - Orthopnoea [Unknown]
  - Hyperhidrosis [Recovered/Resolved]
  - Blood pressure normal [Unknown]
  - Vomiting [Recovered/Resolved]
